FAERS Safety Report 5969397-5 (Version None)
Quarter: 2008Q4

REPORT INFORMATION
  Report Type: 
  Country: None (occurrence: None)
  Receive Date: 20081126
  Receipt Date: 20081119
  Transmission Date: 20090506
  Serious: Yes (Hospitalization)
  Sender: FDA-Public Use
  Company Number: JP-ABBOTT-08P-087-0479431-00

PATIENT
  Sex: Female
  Weight: 45 kg

DRUGS (16)
  1. HUMIRA [Suspect]
     Indication: ANKYLOSING SPONDYLITIS
     Route: 058
     Dates: start: 20080507, end: 20080922
  2. LOXOPROFEN [Concomitant]
     Indication: ANKYLOSING SPONDYLITIS
     Route: 048
     Dates: start: 20020101, end: 20080201
  3. MELOXICAM [Concomitant]
     Indication: ANKYLOSING SPONDYLITIS
     Route: 048
     Dates: start: 20080202, end: 20080324
  4. MELOXICAM [Concomitant]
     Route: 048
     Dates: start: 20080325, end: 20080910
  5. PROPOFOL [Concomitant]
     Indication: PREOPERATIVE CARE
     Route: 042
     Dates: start: 20081002, end: 20081002
  6. CEFAZOLIN SODIUM [Concomitant]
     Indication: INFECTION PROPHYLAXIS
     Route: 042
     Dates: start: 20081002, end: 20081002
  7. BROMHEXINE HYDROCHLORIDE [Concomitant]
     Indication: PRODUCTIVE COUGH
     Route: 055
     Dates: start: 20081003
  8. BROMHEXINE HYDROCHLORIDE [Concomitant]
     Route: 055
     Dates: start: 20081016, end: 20081017
  9. BROMHEXINE HYDROCHLORIDE [Concomitant]
     Route: 055
     Dates: start: 20081020, end: 20081020
  10. HYPERBASIC OXYGEN THERAPY [Concomitant]
     Indication: INTERVERTEBRAL DISCITIS
     Dates: start: 20081003
  11. HYPERBASIC OXYGEN THERAPY [Concomitant]
     Indication: OSTEOMYELITIS
  12. XYLOCAINE W/GLUCOSE [Concomitant]
     Indication: SEDATIVE THERAPY
     Route: 061
     Dates: start: 20081002, end: 20081002
  13. LACTEC [Concomitant]
     Indication: FLUID REPLACEMENT
     Route: 042
     Dates: start: 20081002, end: 20081003
  14. ALFACALCIDOL [Concomitant]
     Indication: OSTEOPOROSIS
     Route: 048
     Dates: start: 20081021
  15. ALENDRONIC ACID [Concomitant]
     Indication: OSTEOPOROSIS
     Route: 048
     Dates: start: 20081021
  16. GADODIAMIDE [Concomitant]
     Indication: FLUID REPLACEMENT
     Route: 042
     Dates: start: 20081015, end: 20081015

REACTIONS (2)
  - INTERVERTEBRAL DISCITIS [None]
  - OSTEOMYELITIS [None]
